FAERS Safety Report 22202161 (Version 1)
Quarter: 2023Q2

REPORT INFORMATION
  Report Type: Report from Study
  Country: US (occurrence: US)
  Receive Date: 20230412
  Receipt Date: 20230412
  Transmission Date: 20230721
  Serious: Yes (Other)
  Sender: FDA-Public Use
  Company Number: US-ABBVIE-4718354

PATIENT
  Sex: Female

DRUGS (2)
  1. HUMIRA [Suspect]
     Active Substance: ADALIMUMAB
     Indication: Rheumatoid arthritis
     Route: 058
     Dates: start: 20211001, end: 20211001
  2. HUMIRA [Suspect]
     Active Substance: ADALIMUMAB
     Route: 058
     Dates: start: 20211008

REACTIONS (5)
  - Trigger finger [Recovering/Resolving]
  - Osteoarthritis [Recovering/Resolving]
  - Incorrect dose administered [Unknown]
  - Injection site erythema [Unknown]
  - Musculoskeletal disorder [Unknown]
